FAERS Safety Report 4289837-X (Version None)
Quarter: 2004Q1

REPORT INFORMATION
  Report Type: 
  Country: None (occurrence: None)
  Receive Date: 20040209
  Receipt Date: 20031211
  Transmission Date: 20041129
  Serious: No
  Sender: FDA-Public Use
  Company Number: US-GLAXOSMITHKLINE-A0442795A

PATIENT
  Age: 33 Year
  Sex: Female

DRUGS (3)
  1. PAXIL [Suspect]
     Indication: DEPRESSION
     Dosage: 12.5MG PER DAY
     Route: 048
  2. TOPROL-XL [Concomitant]
  3. XANAX [Concomitant]

REACTIONS (2)
  - DIARRHOEA [None]
  - NAUSEA [None]
